FAERS Safety Report 22322770 (Version 1)
Quarter: 2023Q2

REPORT INFORMATION
  Report Type: Report from Study
  Country: US (occurrence: US)
  Receive Date: 20230516
  Receipt Date: 20230516
  Transmission Date: 20230722
  Serious: Yes (Death, Hospitalization)
  Sender: FDA-Public Use
  Company Number: US-INSMED, INC.-2023-01656-US

PATIENT
  Age: 76 Year
  Sex: Female

DRUGS (1)
  1. ARIKAYCE [Suspect]
     Active Substance: AMIKACIN
     Indication: Mycobacterium avium complex infection
     Dosage: 590 MILLIGRAM, QD
     Route: 055
     Dates: start: 2022

REACTIONS (3)
  - Death [Fatal]
  - Hospitalisation [Unknown]
  - Hospice care [Unknown]

NARRATIVE: CASE EVENT DATE: 20230503
